FAERS Safety Report 11924094 (Version 1)
Quarter: 2016Q1

REPORT INFORMATION
  Report Type: Spontaneous
  Country: IT (occurrence: IT)
  Receive Date: 20160118
  Receipt Date: 20160118
  Transmission Date: 20160526
  Serious: Yes (Hospitalization)
  Sender: FDA-Public Use
  Company Number: IT-ASTRAZENECA-2016SE03671

PATIENT
  Age: 19634 Day
  Sex: Male

DRUGS (2)
  1. CRESTOR [Suspect]
     Active Substance: ROSUVASTATIN CALCIUM
     Route: 048
     Dates: start: 20140601, end: 20151203
  2. VECLAM (CLARITHROMYCIN) [Suspect]
     Active Substance: CLARITHROMYCIN
     Dosage: NON AZ PRODUCT
     Route: 065
     Dates: start: 20151202, end: 20151202

REACTIONS (1)
  - Muscle haemorrhage [Recovered/Resolved]

NARRATIVE: CASE EVENT DATE: 20151202
